FAERS Safety Report 7326125-9 (Version None)
Quarter: 2011Q1

REPORT INFORMATION
  Report Type: 
  Country: None (occurrence: None)
  Receive Date: 20110302
  Receipt Date: 20110222
  Transmission Date: 20110831
  Serious: Yes (Hospitalization, Disabling)
  Sender: FDA-Public Use
  Company Number: GB-ROCHE-761531

PATIENT
  Age: 69 Year
  Sex: Male
  Weight: 100 kg

DRUGS (7)
  1. QVAR 40 [Concomitant]
     Route: 055
  2. LISINOPRIL [Concomitant]
     Route: 048
  3. SIMVASTATIN [Concomitant]
     Route: 048
  4. QUININE SULFATE [Concomitant]
     Route: 048
  5. ORLISTAT [Suspect]
     Indication: OBESITY
     Route: 048
     Dates: start: 20091101, end: 20110101
  6. ASPIRIN [Concomitant]
     Route: 048
  7. LANTUS [Concomitant]
     Route: 058

REACTIONS (4)
  - GLOMERULAR FILTRATION RATE DECREASED [None]
  - BLOOD CREATININE INCREASED [None]
  - NEPHROPATHY [None]
  - URINE OXALATE [None]
